FAERS Safety Report 18390381 (Version 1)
Quarter: 2020Q4

REPORT INFORMATION
  Report Type: Spontaneous
  Country: US (occurrence: US)
  Receive Date: 20201015
  Receipt Date: 20201015
  Transmission Date: 20210114
  Serious: Yes (Disabling, Other)
  Sender: FDA-Public Use
  Company Number: US-TEVA-2020-US-1838244

PATIENT
  Sex: Male

DRUGS (4)
  1. TRAMADOL EXTENDED-RELEASE TABLETS [Suspect]
     Active Substance: TRAMADOL HYDROCHLORIDE
     Route: 065
  2. OXYCONTIN [Suspect]
     Active Substance: OXYCODONE HYDROCHLORIDE
     Route: 065
  3. BUPRENORPHINE. [Suspect]
     Active Substance: BUPRENORPHINE
     Route: 065
  4. OXYCODONE IMMEDIATE-RELEASE TABLETS [Suspect]
     Active Substance: OXYCODONE HYDROCHLORIDE
     Route: 065

REACTIONS (9)
  - Disability [Unknown]
  - Overdose [Unknown]
  - Substance use disorder [Unknown]
  - Loss of employment [Unknown]
  - Dependence [Unknown]
  - Suicidal ideation [Unknown]
  - Leukaemia [Unknown]
  - Thrombosis [Unknown]
  - Fatigue [Unknown]
